FAERS Safety Report 21206345 (Version 1)
Quarter: 2022Q3

REPORT INFORMATION
  Report Type: Spontaneous
  Country: IT (occurrence: IT)
  Receive Date: 20220812
  Receipt Date: 20220812
  Transmission Date: 20221026
  Serious: Yes (Hospitalization)
  Sender: FDA-Public Use
  Company Number: IT-MYLANLABS-2022M1084681

PATIENT
  Age: 58 Year
  Sex: Male

DRUGS (3)
  1. BACLOFEN [Suspect]
     Active Substance: BACLOFEN
     Indication: Muscle spasticity
     Dosage: 100 MICROGRAM, QD, INTRATHECAL INFUSION
     Route: 037
     Dates: start: 2019
  2. BACLOFEN [Suspect]
     Active Substance: BACLOFEN
     Dosage: 250 MICROGRAM, QD, INTRATHECAL INFUSION
     Route: 037
  3. BACLOFEN [Suspect]
     Active Substance: BACLOFEN
     Dosage: 100 MICROGRAM, QD WAS RESTARTED
     Route: 037
     Dates: start: 2019

REACTIONS (6)
  - Sedation [Recovering/Resolving]
  - Unresponsive to stimuli [Recovered/Resolved]
  - Bradypnoea [Recovering/Resolving]
  - Blood pressure decreased [Recovering/Resolving]
  - Device malfunction [Recovering/Resolving]
  - Accidental overdose [Recovering/Resolving]
